FAERS Safety Report 20089681 (Version 7)
Quarter: 2022Q1

REPORT INFORMATION
  Report Type: Report from Study
  Country: US (occurrence: US)
  Receive Date: 20211119
  Receipt Date: 20220307
  Transmission Date: 20220423
  Serious: Yes (Other)
  Sender: FDA-Public Use
  Company Number: US-NOVARTISTESTPH-NVSC2021US264210

PATIENT
  Sex: Female

DRUGS (2)
  1. COSENTYX [Suspect]
     Active Substance: SECUKINUMAB
     Indication: Product used for unknown indication
     Dosage: UNK
     Route: 065
  2. COSENTYX [Suspect]
     Active Substance: SECUKINUMAB
     Dosage: 300 MG(TWO 150 MG SYRINGES)
     Route: 065

REACTIONS (7)
  - Pulmonary hypertension [Unknown]
  - Brain neoplasm [Unknown]
  - Dysstasia [Unknown]
  - Pain [Unknown]
  - Arthritis [Unknown]
  - Condition aggravated [Unknown]
  - Drug ineffective [Unknown]
